FAERS Safety Report 6264728-3 (Version None)
Quarter: 2009Q3

REPORT INFORMATION
  Report Type: 
  Country: None (occurrence: None)
  Receive Date: 20090710
  Receipt Date: 20090701
  Transmission Date: 20100115
  Serious: Yes (Hospitalization, Other)
  Sender: FDA-Public Use
  Company Number: JP-PFIZER INC-2009227676

PATIENT
  Age: 25 Year

DRUGS (4)
  1. ZOLOFT [Suspect]
     Indication: PANIC DISORDER
     Dosage: 75 MG DAILY
     Route: 048
     Dates: start: 20090311, end: 20090601
  2. ROHYPNOL [Suspect]
     Indication: INSOMNIA
     Dosage: 1 MG, 1X/DAY
     Route: 048
     Dates: start: 20090311, end: 20090518
  3. MYSLEE [Suspect]
     Indication: INSOMNIA
     Dosage: 5 MG, 1X/DAY
     Route: 048
     Dates: start: 20090602
  4. TETRAMIDE [Concomitant]
     Dosage: UNK
     Route: 048
     Dates: start: 20090602

REACTIONS (4)
  - CONVULSION [None]
  - HAEMORRHAGE SUBCUTANEOUS [None]
  - LOSS OF CONSCIOUSNESS [None]
  - PYREXIA [None]
